FAERS Safety Report 14813320 (Version 4)
Quarter: 2018Q2

REPORT INFORMATION
  Report Type: Report from Study
  Country: None (occurrence: US)
  Receive Date: 20180426
  Receipt Date: 20180531
  Transmission Date: 20180711
  Serious: Yes (Hospitalization, Other)
  Sender: FDA-Public Use
  Company Number: US-ABBVIE-18K-163-2335174-00

PATIENT
  Age: 68 Year
  Sex: Male
  Weight: 77.18 kg

DRUGS (6)
  1. PLAVIX [Concomitant]
     Active Substance: CLOPIDOGREL BISULFATE
     Indication: CORONARY ARTERIAL STENT INSERTION
  2. HUMIRA [Suspect]
     Active Substance: ADALIMUMAB
     Indication: CROHN^S DISEASE
     Route: 058
     Dates: start: 2016, end: 20180404
  3. METOPROLOL. [Concomitant]
     Active Substance: METOPROLOL
     Indication: HYPERTENSION
  4. REQUIP [Concomitant]
     Active Substance: ROPINIROLE HYDROCHLORIDE
     Indication: RESTLESS LEGS SYNDROME
  5. LISINOPRIL. [Concomitant]
     Active Substance: LISINOPRIL
     Indication: HYPERTENSION
  6. LIALDA [Concomitant]
     Active Substance: MESALAMINE
     Indication: CROHN^S DISEASE

REACTIONS (7)
  - Dysphagia [Not Recovered/Not Resolved]
  - Meningitis chemical [Recovering/Resolving]
  - Immunodeficiency [Not Recovered/Not Resolved]
  - Pneumonia [Recovered/Resolved]
  - Cardio-respiratory arrest [Recovering/Resolving]
  - Endotracheal intubation complication [Recovering/Resolving]
  - Laryngeal injury [Recovering/Resolving]

NARRATIVE: CASE EVENT DATE: 2016
